FAERS Safety Report 24881656 (Version 1)
Quarter: 2025Q1

REPORT INFORMATION
  Report Type: Spontaneous
  Country: CN (occurrence: CN)
  Receive Date: 20250124
  Receipt Date: 20250124
  Transmission Date: 20250409
  Serious: Yes (Life-Threatening)
  Sender: GE HEALTHCARE
  Company Number: CN-GE HEALTHCARE-2025CSU000722

PATIENT
  Age: 61 Year
  Sex: Female
  Weight: 46 kg

DRUGS (1)
  1. OMNIPAQUE [Suspect]
     Active Substance: IOHEXOL
     Indication: Computerised tomogram abdomen
     Route: 042
     Dates: start: 20240910, end: 20240910

REACTIONS (5)
  - Eye movement disorder [Recovering/Resolving]
  - Ocular hyperaemia [Recovering/Resolving]
  - Eye pruritus [Recovering/Resolving]
  - Asthenia [Recovering/Resolving]
  - Chills [Recovering/Resolving]

NARRATIVE: CASE EVENT DATE: 20240910
